FAERS Safety Report 21577203 (Version 1)
Quarter: 2022Q4

REPORT INFORMATION
  Report Type: Spontaneous
  Country: US (occurrence: US)
  Receive Date: 20221110
  Receipt Date: 20221110
  Transmission Date: 20230113
  Serious: No
  Sender: FDA-Public Use
  Company Number: US-GLAXOSMITHKLINE-USCH2022042896

PATIENT
  Sex: Female

DRUGS (2)
  1. ADVIL PM [Suspect]
     Active Substance: DIPHENHYDRAMINE CITRATE\IBUPROFEN
     Indication: Pain
     Dosage: 1 DF
  2. ADVIL PM [Suspect]
     Active Substance: DIPHENHYDRAMINE CITRATE\IBUPROFEN
     Indication: Sleep disorder

REACTIONS (5)
  - Somnolence [Unknown]
  - Fatigue [Unknown]
  - Underdose [Unknown]
  - Drug effective for unapproved indication [Unknown]
  - Product use in unapproved indication [Unknown]
